FAERS Safety Report 19451834 (Version 1)
Quarter: 2021Q2

REPORT INFORMATION
  Report Type: Report from Study
  Country: JP (occurrence: JP)
  Receive Date: 20210623
  Receipt Date: 20210623
  Transmission Date: 20210717
  Serious: Yes (Other)
  Sender: FDA-Public Use
  Company Number: JP-AUROBINDO-AUR-APL-2021-026548

PATIENT
  Age: 77 Year
  Sex: Male
  Weight: 61 kg

DRUGS (7)
  1. FOLIC ACID. [Concomitant]
     Active Substance: FOLIC ACID
     Indication: PRODUCT USED FOR UNKNOWN INDICATION
     Dosage: UNK
     Route: 065
     Dates: start: 20201116
  2. FOLOTYN [Suspect]
     Active Substance: PRALATREXATE
     Dosage: 30 MILLIGRAM/SQ. METER, EVERY WEEK
     Route: 042
     Dates: start: 20210106, end: 20210113
  3. FOLOTYN [Suspect]
     Active Substance: PRALATREXATE
     Dosage: 30 MILLIGRAM/SQ. METER, EVERY WEEK
     Route: 042
     Dates: start: 20210317, end: 20210421
  4. FOLOTYN [Suspect]
     Active Substance: PRALATREXATE
     Dosage: 30 MILLIGRAM/SQ. METER, EVERY WEEK
     Route: 042
     Dates: start: 20210506, end: 20210512
  5. FOLOTYN [Suspect]
     Active Substance: PRALATREXATE
     Indication: ANGIOIMMUNOBLASTIC T-CELL LYMPHOMA STAGE I
     Dosage: 30 MILLIGRAM/SQ. METER, EVERY WEEK
     Route: 042
     Dates: start: 20201202, end: 20201223
  6. FOLOTYN [Suspect]
     Active Substance: PRALATREXATE
     Dosage: 30 MILLIGRAM/SQ. METER, EVERY WEEK
     Route: 042
     Dates: start: 20210217, end: 20210303
  7. VITAMIN B12 [Concomitant]
     Active Substance: CYANOCOBALAMIN
     Indication: PRODUCT USED FOR UNKNOWN INDICATION
     Dosage: UNK
     Route: 065
     Dates: start: 20201116

REACTIONS (7)
  - Decreased appetite [Recovered/Resolved]
  - Pyelonephritis [Recovered/Resolved]
  - Therapeutic response decreased [Unknown]
  - Malaise [Recovered/Resolved]
  - Malignant neoplasm progression [Unknown]
  - Stomatitis [Unknown]
  - C-reactive protein increased [Recovered/Resolved]

NARRATIVE: CASE EVENT DATE: 20210124
